FAERS Safety Report 8413367-4 (Version None)
Quarter: 2012Q2

REPORT INFORMATION
  Report Type: 
  Country: None (occurrence: None)
  Receive Date: 20120605
  Receipt Date: 20120522
  Transmission Date: 20120825
  Serious: No
  Sender: FDA-Public Use
  Company Number: US-ROXANE LABORATORIES, INC.-2012-RO-01101RO

PATIENT
  Sex: Female

DRUGS (5)
  1. TRAZODONE HCL [Concomitant]
     Dosage: 50 MG
  2. PILOCARPINE [Suspect]
     Indication: DRY MOUTH
     Dosage: 30 MG
     Route: 048
     Dates: start: 20120412, end: 20120412
  3. DIGOXIN [Concomitant]
  4. LORAZEPAM [Concomitant]
     Dosage: 1 MG
  5. ATENOLOL [Concomitant]

REACTIONS (1)
  - DRUG INEFFECTIVE [None]
